FAERS Safety Report 21130452 (Version 3)
Quarter: 2023Q1

REPORT INFORMATION
  Report Type: Spontaneous
  Country: US (occurrence: US)
  Receive Date: 20220726
  Receipt Date: 20230213
  Transmission Date: 20230418
  Serious: Yes (Other)
  Sender: FDA-Public Use
  Company Number: US-JNJFOC-20220736832

PATIENT
  Age: 68 Year
  Sex: Male
  Weight: 89.8 kg

DRUGS (4)
  1. AVOBENZONE\HOMOSALATE\OCTISALATE\OCTOCRYLENE [Suspect]
     Active Substance: AVOBENZONE\HOMOSALATE\OCTISALATE\OCTOCRYLENE
     Indication: Prophylaxis against solar radiation
     Dosage: ^DAILY AND WEEKLY THROUGH SPRING AND SUMMER AND FALL
     Route: 061
  2. CARDIZEM [Concomitant]
     Active Substance: DILTIAZEM HYDROCHLORIDE
     Indication: Product used for unknown indication
     Dosage: 60 MG TABLET
     Route: 048
  3. ASPIRIN [Concomitant]
     Active Substance: ASPIRIN
     Indication: Coagulopathy
     Dosage: 81 MG TABLET
     Route: 048
  4. ASPIRIN [Concomitant]
     Active Substance: ASPIRIN
     Indication: Cerebrovascular disorder

REACTIONS (8)
  - Skin cancer [Unknown]
  - Haemangioma of skin [Unknown]
  - Actinic keratosis [Unknown]
  - Scar [Unknown]
  - Lentigo [Unknown]
  - Seborrhoeic keratosis [Unknown]
  - Melanocytic naevus [Unknown]
  - Skin injury [Unknown]

NARRATIVE: CASE EVENT DATE: 20210402
